FAERS Safety Report 6013015-7 (Version None)
Quarter: 2008Q4

REPORT INFORMATION
  Report Type: 
  Country: None (occurrence: None)
  Receive Date: 20081219
  Receipt Date: 20081209
  Transmission Date: 20090506
  Serious: Yes (Death, Hospitalization)
  Sender: FDA-Public Use
  Company Number: NO-PFIZER INC-2008100731

PATIENT

DRUGS (14)
  1. BLINDED *PLACEBO [Suspect]
     Indication: NON-SMALL CELL LUNG CANCER
     Dosage: UNK
     Dates: start: 20081006, end: 20081120
  2. BLINDED SUNITINIB MALATE [Suspect]
     Indication: NON-SMALL CELL LUNG CANCER
     Dosage: UNK
     Dates: start: 20081006, end: 20081120
  3. *ERLOTINIB [Suspect]
     Indication: NON-SMALL CELL LUNG CANCER
     Dosage: 150 MG, 1X/DAY
     Dates: start: 20081006, end: 20081120
  4. OXYNORM [Concomitant]
     Dates: start: 20081003
  5. OXYCONTIN [Concomitant]
     Dates: start: 20081003
  6. ACETAMINOPHEN [Concomitant]
     Dates: start: 20080912
  7. SOBRIL [Concomitant]
     Dates: start: 20080501
  8. LEVONORGESTREL [Concomitant]
     Dates: start: 20040415
  9. IMOVANE [Concomitant]
     Dates: start: 20080912
  10. AFIPRAN [Concomitant]
     Dates: start: 20081003
  11. HYDROKORTISON [Concomitant]
     Dates: start: 20081016
  12. DUPHALAC [Concomitant]
     Dates: start: 20081016
  13. ANTIBIOTICS FOR TOPICAL USE [Concomitant]
     Dates: start: 20081103
  14. NAVOBAN [Concomitant]
     Dates: start: 20081117

REACTIONS (5)
  - DECREASED APPETITE [None]
  - DISEASE PROGRESSION [None]
  - NAUSEA [None]
  - NON-SMALL CELL LUNG CANCER [None]
  - WEIGHT DECREASED [None]
